FAERS Safety Report 18130232 (Version 1)
Quarter: 2020Q3

REPORT INFORMATION
  Report Type: Spontaneous
  Country: CL (occurrence: CL)
  Receive Date: 20200810
  Receipt Date: 20200810
  Transmission Date: 20201103
  Serious: Yes (Other)
  Sender: FDA-Public Use
  Company Number: NVSC2020CL220407

PATIENT
  Age: 36 Year
  Sex: Male

DRUGS (1)
  1. FINGOLIMOD. [Suspect]
     Active Substance: FINGOLIMOD
     Indication: RELAPSING-REMITTING MULTIPLE SCLEROSIS
     Dosage: UNK
     Route: 065
     Dates: start: 2014

REACTIONS (4)
  - Thrombosis [Recovered/Resolved]
  - Renal artery dissection [Recovered/Resolved]
  - Nausea [Unknown]
  - Abdominal pain [Unknown]
